FAERS Safety Report 6672410-3 (Version None)
Quarter: 2010Q2

REPORT INFORMATION
  Report Type: 
  Country: None (occurrence: None)
  Receive Date: 20100408
  Receipt Date: 20100324
  Transmission Date: 20101027
  Serious: Yes (Hospitalization, Other)
  Sender: FDA-Public Use
  Company Number: US-ELI_LILLY_AND_COMPANY-US201002003057

PATIENT
  Sex: Female

DRUGS (10)
  1. FORTEO [Suspect]
     Indication: OSTEOPOROSIS
     Dosage: 20 UG, DAILY (1/D)
     Route: 058
     Dates: start: 20090101, end: 20100201
  2. TUMS [Concomitant]
     Indication: MINERAL SUPPLEMENTATION
     Dosage: 2 D/F, UNK
  3. PREDNISONE [Concomitant]
     Dosage: 5 MG, DAILY (1/D)
  4. FOLIC ACID [Concomitant]
     Dosage: 1 MG, DAILY (1/D)
  5. POTASSIUM CHLORIDE [Concomitant]
     Dosage: 10 MEQ, DAILY (1/D)
  6. METHOTREXATE [Concomitant]
     Dosage: 20 MG, WEEKLY (1/W)
  7. ATENOLOL [Concomitant]
     Dosage: 25 MG, DAILY (1/D)
  8. DIGOXIN [Concomitant]
     Dosage: 0.5 D/F, DAILY (1/D)
  9. MULTI-VITAMIN [Concomitant]
  10. ASPIRIN [Concomitant]
     Dosage: 81 MG, DAILY (1/D)

REACTIONS (10)
  - ASTHENIA [None]
  - CARDIAC PACEMAKER INSERTION [None]
  - FEELING ABNORMAL [None]
  - HEART RATE DECREASED [None]
  - HEART RATE INCREASED [None]
  - HYPOACUSIS [None]
  - MALAISE [None]
  - MEMORY IMPAIRMENT [None]
  - RHEUMATOID ARTHRITIS [None]
  - SYNCOPE [None]
